FAERS Safety Report 14141038 (Version 1)
Quarter: 2017Q4

REPORT INFORMATION
  Report Type: Spontaneous
  Country: US (occurrence: US)
  Receive Date: 20171027
  Receipt Date: 20171027
  Transmission Date: 20180321
  Serious: Yes (Other)
  Sender: FDA-Public Use
  Company Number: None

PATIENT
  Age: 38 Year
  Sex: Female
  Weight: 54 kg

DRUGS (2)
  1. XIIDRA [Suspect]
     Active Substance: LIFITEGRAST
     Indication: AUTOIMMUNE DISORDER
     Dosage: ?          QUANTITY:1 DROP(S);?
     Route: 047
     Dates: start: 20170101, end: 20170101
  2. XIIDRA [Suspect]
     Active Substance: LIFITEGRAST
     Indication: DRY EYE
     Dosage: ?          QUANTITY:1 DROP(S);?
     Route: 047
     Dates: start: 20170101, end: 20170101

REACTIONS (2)
  - Vision blurred [None]
  - Blindness [None]

NARRATIVE: CASE EVENT DATE: 20170101
